FAERS Safety Report 9103187 (Version 1)
Quarter: 2013Q1

REPORT INFORMATION
  Report Type: Spontaneous
  Country: AU (occurrence: AU)
  Receive Date: 20130219
  Receipt Date: 20130219
  Transmission Date: 20140127
  Serious: Yes (Other)
  Sender: FDA-Public Use
  Company Number: PHHY2013AU003915

PATIENT
  Age: 66 None
  Sex: Female
  Weight: 75 kg

DRUGS (4)
  1. GILENYA [Suspect]
     Indication: MULTIPLE SCLEROSIS
     Dosage: 0.5 MG, QD
     Route: 048
     Dates: start: 20121020, end: 20130109
  2. KEFLEX [Concomitant]
     Route: 048
  3. VIT D [Concomitant]
     Route: 048
  4. ENDEP [Concomitant]
     Route: 048

REACTIONS (8)
  - Pseudolymphoma [Recovered/Resolved]
  - Skin lesion [Recovered/Resolved]
  - Optic atrophy [Unknown]
  - Visual acuity reduced [Unknown]
  - Cough [Unknown]
  - White blood cell count decreased [Unknown]
  - Neutrophil count decreased [Unknown]
  - Lymphocyte count decreased [Unknown]
